FAERS Safety Report 6866299-7 (Version None)
Quarter: 2010Q3

REPORT INFORMATION
  Report Type: 
  Country: None (occurrence: None)
  Receive Date: 20100722
  Receipt Date: 20100712
  Transmission Date: 20110219
  Serious: Yes (Other)
  Sender: FDA-Public Use
  Company Number: US-JNJFOC-20100703952

PATIENT
  Sex: Male
  Weight: 99.79 kg

DRUGS (9)
  1. STELARA [Suspect]
     Indication: PSORIASIS
     Route: 058
  2. STELARA [Suspect]
     Route: 058
  3. STELARA [Suspect]
     Route: 058
  4. PREDNISONE TAB [Suspect]
     Indication: PSORIASIS
     Route: 048
  5. BETAPACE [Concomitant]
     Indication: CARDIAC DISORDER
  6. LISINOPRIL [Concomitant]
  7. PLAVIX [Concomitant]
  8. WARFARIN [Concomitant]
  9. ASPIRIN [Concomitant]

REACTIONS (2)
  - BLOOD CHOLESTEROL INCREASED [None]
  - DIABETES MELLITUS [None]
